FAERS Safety Report 7110911-4 (Version None)
Quarter: 2010Q4

REPORT INFORMATION
  Report Type: 
  Country: None (occurrence: None)
  Receive Date: 20101118
  Receipt Date: 20101108
  Transmission Date: 20110411
  Serious: Yes (Life-Threatening)
  Sender: FDA-Public Use
  Company Number: SE-SANOFI-AVENTIS-2010SA066291

PATIENT
  Sex: Male

DRUGS (5)
  1. MULTAQ [Suspect]
     Indication: ATRIAL FIBRILLATION
     Route: 048
     Dates: start: 20100917, end: 20101004
  2. AMLODIPINE BESYLATE [Concomitant]
     Route: 065
  3. ENALAPRIL MALEATE [Concomitant]
  4. SIMVASTATIN [Concomitant]
     Route: 065
  5. WARAN [Concomitant]

REACTIONS (4)
  - ATRIOVENTRICULAR BLOCK FIRST DEGREE [None]
  - CARDIAC ARREST [None]
  - VENTRICULAR EXTRASYSTOLES [None]
  - VENTRICULAR TACHYARRHYTHMIA [None]
